FAERS Safety Report 9818802 (Version 1)
Quarter: 2014Q1

REPORT INFORMATION
  Report Type: Report from Study
  Country: US (occurrence: KR)
  Receive Date: 20140115
  Receipt Date: 20140115
  Transmission Date: 20141002
  Serious: Yes (Hospitalization)
  Sender: FDA-Public Use
  Company Number: KR-FRI-1000050848

PATIENT
  Age: 82 Year
  Sex: Male
  Weight: 55 kg

DRUGS (22)
  1. ROFLUMILAST [Suspect]
     Indication: CHRONIC OBSTRUCTIVE PULMONARY DISEASE
     Dosage: 500 MCG
     Route: 048
     Dates: start: 20130603
  2. ONBREZ [Concomitant]
     Dates: start: 20130603
  3. ALVESCO [Concomitant]
     Dates: start: 20130710
  4. SYMBICORT [Concomitant]
     Dates: start: 20130807
  5. VENTOLIN [Concomitant]
     Dates: start: 20131021
  6. SPIRIVA [Concomitant]
     Dates: start: 20130807
  7. ATROVENT [Concomitant]
     Dates: start: 20131030
  8. SINGULAIR [Concomitant]
     Dates: start: 20130807
  9. AMINOPHYLLINE [Concomitant]
     Dates: start: 20131030
  10. XYZAL [Concomitant]
     Dates: start: 20130603
  11. STILLEN [Concomitant]
     Dates: start: 20130603
  12. MACPERAN [Concomitant]
     Dates: start: 20130603
  13. METHYLON [Concomitant]
     Dates: start: 20130603
  14. SYNATURA [Concomitant]
     Dosage: 45 MG
     Route: 048
     Dates: start: 20130603
  15. COUGH SYRUP [Concomitant]
     Dosage: 30 MG
     Route: 048
     Dates: start: 20130603
  16. OMNARIS NASAL SPRAY [Concomitant]
     Dosage: 100 UG
     Route: 045
     Dates: start: 20130710
  17. SOLU-MEDROL [Concomitant]
     Indication: PROPHYLAXIS
     Dosage: 62.5 MG
     Route: 042
     Dates: start: 20131021, end: 20131021
  18. RULID [Concomitant]
     Indication: PROPHYLAXIS
     Dosage: 300 MG
     Route: 048
  19. TAMIPOOL [Concomitant]
     Indication: PROPHYLAXIS
     Dosage: 5 ML
     Route: 042
     Dates: start: 20131030
  20. YAMATETAN [Concomitant]
     Indication: PROPHYLAXIS
     Dosage: 2 G
     Route: 042
     Dates: start: 20131030
  21. ERDOS [Concomitant]
     Indication: PROPHYLAXIS
     Dosage: 900 MG
     Route: 048
     Dates: start: 20131030
  22. PRIMALAN [Concomitant]
     Indication: PROPHYLAXIS
     Dosage: 15 MG
     Route: 048
     Dates: start: 20131030

REACTIONS (1)
  - Dyspnoea [Recovering/Resolving]
